FAERS Safety Report 9051275 (Version 1)
Quarter: 2013Q1

REPORT INFORMATION
  Report Type: Spontaneous
  Country: FR (occurrence: FR)
  Receive Date: 20130206
  Receipt Date: 20130206
  Transmission Date: 20140127
  Serious: Yes (Hospitalization)
  Sender: FDA-Public Use
  Company Number: FR-SANOFI-AVENTIS-2013SA004707

PATIENT
  Age: 82 Year
  Sex: Female

DRUGS (8)
  1. LASILIX [Suspect]
     Indication: CARDIAC FAILURE
     Route: 048
     Dates: start: 20121212, end: 20121224
  2. LASILIX [Suspect]
     Indication: CARDIAC FAILURE
     Route: 048
     Dates: start: 20121226
  3. LEVOTHYROX [Concomitant]
     Indication: HYPOTHYROIDISM
     Route: 048
  4. KARDEGIC [Concomitant]
     Route: 048
  5. ESOMEPRAZOLE [Concomitant]
     Route: 048
  6. FERROUS SULFATE [Concomitant]
     Route: 048
  7. ALLOPURINOL [Concomitant]
     Route: 048
  8. EPOETIN BETA [Concomitant]
     Dosage: DOSE:3 UNIT(S)
     Route: 048

REACTIONS (2)
  - Electrocardiogram abnormal [Unknown]
  - Hypokalaemia [Recovered/Resolved]
